FAERS Safety Report 7256270-8 (Version None)
Quarter: 2011Q1

REPORT INFORMATION
  Report Type: 
  Country: None (occurrence: None)
  Receive Date: 20110129
  Receipt Date: 20100521
  Transmission Date: 20110831
  Serious: Yes (Other)
  Sender: FDA-Public Use
  Company Number: US-ABBOTT-10P-163-0646265-00

PATIENT
  Sex: Female
  Weight: 68.1 kg

DRUGS (12)
  1. HUMIRA [Suspect]
     Indication: RHEUMATOID ARTHRITIS
     Route: 058
     Dates: start: 20091101, end: 20100101
  2. METHOTREXATE [Concomitant]
     Indication: RHEUMATOID ARTHRITIS
     Route: 048
  3. HUMULIN R [Concomitant]
     Indication: DIABETES MELLITUS
     Dosage: 10U IN AM, 8-10U QHS
     Route: 058
  4. PREDNISONE [Concomitant]
     Dates: start: 20100201
  5. DOXYCYCLINE [Concomitant]
     Indication: ACNE
  6. LISINOPRIL [Concomitant]
     Indication: PROPHYLAXIS
     Route: 048
  7. FOLIC ACID [Concomitant]
     Indication: VITAMIN SUPPLEMENTATION
  8. LISINOPRIL [Concomitant]
     Indication: DIABETES MELLITUS
  9. PREMARIN [Concomitant]
     Indication: HYSTERECTOMY
     Route: 048
     Dates: start: 20100201
  10. HUMULIN N [Concomitant]
     Indication: DIABETES MELLITUS
     Dosage: 20U IN AM AND QHS
     Route: 058
  11. LISINOPRIL [Concomitant]
     Indication: RENAL DISORDER
  12. PREDNISONE [Concomitant]
     Indication: RHEUMATOID ARTHRITIS
     Route: 048
     Dates: end: 20100201

REACTIONS (2)
  - DYSURIA [None]
  - OVARIAN CANCER [None]
